FAERS Safety Report 6129462-9 (Version None)
Quarter: 2009Q1

REPORT INFORMATION
  Report Type: 
  Country: None (occurrence: None)
  Receive Date: 20090323
  Receipt Date: 20090323
  Transmission Date: 20090719
  Serious: Yes (Hospitalization, Disabling, Other)
  Sender: FDA-Public Use
  Company Number: None

PATIENT
  Age: 44 Year
  Sex: Female
  Weight: 63.5036 kg

DRUGS (1)
  1. REGLAN [Suspect]
     Indication: IMPAIRED GASTRIC EMPTYING
     Dosage: 10 MGS 4 X A DAY PO
     Route: 048
     Dates: start: 20080616, end: 20090122

REACTIONS (13)
  - ANOREXIA [None]
  - ANXIETY [None]
  - BRUXISM [None]
  - FATIGUE [None]
  - FEELING ABNORMAL [None]
  - HEADACHE [None]
  - HYPERACUSIS [None]
  - HYPOPHAGIA [None]
  - INSOMNIA [None]
  - MAJOR DEPRESSION [None]
  - MALAISE [None]
  - PAIN [None]
  - RESTLESSNESS [None]
